FAERS Safety Report 5940098-2 (Version None)
Quarter: 2008Q4

REPORT INFORMATION
  Report Type: 
  Country: None (occurrence: None)
  Receive Date: 20081104
  Receipt Date: 20081029
  Transmission Date: 20090506
  Serious: Yes (Other)
  Sender: FDA-Public Use
  Company Number: PHHY2008JP26616

PATIENT
  Age: 57 Year
  Sex: Female

DRUGS (6)
  1. ZOMETA [Suspect]
     Indication: MULTIPLE MYELOMA
     Dosage: UNK
     Route: 042
     Dates: start: 20030101, end: 20070501
  2. THALIDOMIDE [Concomitant]
     Indication: MULTIPLE MYELOMA
     Dosage: UNK
     Dates: start: 20030101
  3. MELPHALAN [Concomitant]
     Indication: MULTIPLE MYELOMA
     Dosage: UNK
     Dates: start: 20030101
  4. PREDONINE [Concomitant]
     Indication: MULTIPLE MYELOMA
     Dosage: UNK
     Dates: start: 20030101
  5. MYSLEE [Concomitant]
     Dosage: UNK
     Dates: start: 20030101
  6. LORAZEPAM [Concomitant]
     Dosage: UNK
     Dates: start: 20030101

REACTIONS (1)
  - OSTEONECROSIS [None]
